FAERS Safety Report 6624735-5 (Version None)
Quarter: 2010Q1

REPORT INFORMATION
  Report Type: 
  Country: None (occurrence: None)
  Receive Date: 20100310
  Receipt Date: 20100304
  Transmission Date: 20100710
  Serious: Yes (Death)
  Sender: FDA-Public Use
  Company Number: JP-BAYER-200913326BYL

PATIENT
  Age: 75 Year
  Sex: Male
  Weight: 53 kg

DRUGS (10)
  1. NEXAVAR [Suspect]
     Indication: HEPATIC NEOPLASM MALIGNANT
     Dosage: TOTAL DAILY DOSE: 800 MG  UNIT DOSE: 200 MG
     Route: 048
     Dates: start: 20090820, end: 20090908
  2. NEXAVAR [Suspect]
     Dosage: TOTAL DAILY DOSE: 400 MG  UNIT DOSE: 200 MG
     Route: 048
     Dates: start: 20090909, end: 20091128
  3. LOXONIN [Concomitant]
     Indication: ANALGESIC THERAPY
     Route: 048
     Dates: end: 20091128
  4. OXYCONTIN [Concomitant]
     Indication: PAIN MANAGEMENT
     Dosage: UNIT DOSE: 5 MG
     Route: 048
     Dates: start: 20090824, end: 20091204
  5. BIOFERMIN [Concomitant]
     Route: 048
     Dates: start: 20090908, end: 20091128
  6. TAKEPRON [Concomitant]
     Indication: GASTRITIS PROPHYLAXIS
     Route: 065
     Dates: end: 20091204
  7. ALMARL [Concomitant]
     Indication: HYPERTENSION
     Route: 048
     Dates: end: 20091204
  8. ADALAT CC [Concomitant]
     Indication: HYPERTENSION
     Route: 048
     Dates: end: 20091204
  9. NU-LOTAN [Concomitant]
     Indication: HYPERTENSION
     Route: 048
     Dates: end: 20091204
  10. KERATINAMIN [Concomitant]
     Indication: PROPHYLAXIS
     Route: 061
     Dates: start: 20090818, end: 20091128

REACTIONS (4)
  - CALCULUS URETERIC [None]
  - DIARRHOEA [None]
  - HEPATIC NEOPLASM MALIGNANT [None]
  - PNEUMONIA [None]
